FAERS Safety Report 4907942-9 (Version None)
Quarter: 2006Q1

REPORT INFORMATION
  Report Type: 
  Country: None (occurrence: None)
  Receive Date: 20060210
  Receipt Date: 20060116
  Transmission Date: 20060701
  Serious: Yes (Hospitalization, Other)
  Sender: FDA-Public Use
  Company Number: FR-RB-2594-2006

PATIENT
  Sex: Male
  Weight: 3.5 kg

DRUGS (5)
  1. BUPRENORPHINE HCL [Suspect]
     Indication: DRUG USE FOR UNKNOWN INDICATION
     Route: 065
     Dates: start: 20040324, end: 20040101
  2. BUPRENORPHINE HCL [Suspect]
     Route: 065
     Dates: start: 20040101, end: 20041214
  3. CLONAZEPAM [Suspect]
     Indication: DRUG USE FOR UNKNOWN INDICATION
     Route: 064
     Dates: start: 20040324, end: 20041214
  4. VALPROATE SODIUM [Suspect]
     Route: 065
     Dates: start: 20040324, end: 20040101
  5. VALPROATE SODIUM [Suspect]
     Route: 065
     Dates: end: 20041214

REACTIONS (3)
  - CONGENITAL ANOMALY [None]
  - DRUG WITHDRAWAL SYNDROME NEONATAL [None]
  - RESPIRATORY DEPRESSION [None]
